FAERS Safety Report 10186927 (Version 2)
Quarter: 2014Q2

REPORT INFORMATION
  Report Type: Report from Study
  Country: US (occurrence: US)
  Receive Date: 20140522
  Receipt Date: 20140606
  Transmission Date: 20141212
  Serious: Yes (Hospitalization)
  Sender: FDA-Public Use
  Company Number: US-BIOGENIDEC-2014BI048056

PATIENT
  Age: 45 Year
  Sex: Female
  Weight: 92 kg

DRUGS (10)
  1. TYSABRI [Suspect]
     Indication: MULTIPLE SCLEROSIS
     Route: 042
     Dates: start: 20061218, end: 20140413
  2. CYMBALTA [Concomitant]
     Indication: ANXIETY
     Route: 048
     Dates: start: 20140224
  3. CYMBALTA [Concomitant]
     Indication: DEPRESSION
     Route: 048
     Dates: start: 20140224
  4. VITAMIN D3 [Concomitant]
     Route: 048
     Dates: start: 20120410
  5. PREVACID [Concomitant]
     Route: 048
     Dates: start: 20120410
  6. CELEBREX [Concomitant]
     Route: 048
     Dates: start: 20120331
  7. ZYRTEC-D [Concomitant]
     Route: 048
     Dates: start: 20120327
  8. VITAMIN B12 [Concomitant]
  9. METAMUCIL [Concomitant]
  10. MULTIVITAMIN [Concomitant]

REACTIONS (1)
  - Mania [Recovered/Resolved]
